FAERS Safety Report 15175663 (Version 2)
Quarter: 2018Q4

REPORT INFORMATION
  Report Type: Spontaneous
  Country: US (occurrence: US)
  Receive Date: 20180720
  Receipt Date: 20181129
  Transmission Date: 20190204
  Serious: Yes (Other)
  Sender: FDA-Public Use
  Company Number: US-TESARO, INC.-US-2018TSO03215

PATIENT
  Age: 75 Year
  Sex: Female
  Weight: 67.12 kg

DRUGS (6)
  1. ZEJULA [Suspect]
     Active Substance: NIRAPARIB
     Dosage: 100 MG ALTERNATING WITH 200 MG EVERY OTHER DAY
     Route: 048
     Dates: start: 20180717, end: 201808
  2. ZEJULA [Suspect]
     Active Substance: NIRAPARIB
     Indication: MALIGNANT PERITONEAL NEOPLASM
     Dosage: 200 MG, QD
     Route: 048
     Dates: start: 20180612
  3. ZEJULA [Suspect]
     Active Substance: NIRAPARIB
     Dosage: 100 MG, UNK
     Route: 048
  4. ZEJULA [Suspect]
     Active Substance: NIRAPARIB
     Dosage: 200 MG, QD
     Route: 048
  5. ZEJULA [Suspect]
     Active Substance: NIRAPARIB
     Dosage: 100 MG, QD
     Route: 048
     Dates: start: 20180824
  6. ZEJULA [Suspect]
     Active Substance: NIRAPARIB
     Indication: OVARIAN CANCER RECURRENT
     Dosage: 300 MG, QD
     Route: 048
     Dates: start: 20180516, end: 20180531

REACTIONS (10)
  - Paraesthesia oral [Recovering/Resolving]
  - Weight decreased [Unknown]
  - Tooth disorder [Unknown]
  - Tongue discomfort [Not Recovered/Not Resolved]
  - Glossodynia [Recovering/Resolving]
  - Nasopharyngitis [Unknown]
  - Stomatitis [Not Recovered/Not Resolved]
  - Product dose omission [Recovered/Resolved]
  - Memory impairment [Unknown]
  - Thrombocytopenia [Not Recovered/Not Resolved]

NARRATIVE: CASE EVENT DATE: 20180614
